FAERS Safety Report 7650769-8 (Version None)
Quarter: 2011Q3

REPORT INFORMATION
  Report Type: 
  Country: None (occurrence: None)
  Receive Date: 20110802
  Receipt Date: 20110728
  Transmission Date: 20111222
  Serious: Yes (Hospitalization, Other)
  Sender: FDA-Public Use
  Company Number: FR-PFIZER INC-2011171750

PATIENT
  Age: 77 Year
  Sex: Male

DRUGS (9)
  1. TELMISARTAN [Suspect]
     Dosage: 40 MG, 1X/DAY
     Route: 048
     Dates: start: 20090101, end: 20110608
  2. AMLODIPINE BESYLATE [Suspect]
     Dosage: 5 MG, 1X/DAY
     Route: 048
     Dates: start: 19970101, end: 20110608
  3. TRAMADOL HCL [Concomitant]
     Dosage: UNK
  4. MEDIATENSYL [Suspect]
     Dosage: 60 MG, 2X/DAY
     Route: 048
     Dates: start: 19990101, end: 20110608
  5. LASIX [Concomitant]
     Dosage: 500 UNK, UNK
     Dates: start: 20070101
  6. BISOPROLOL FUMARATE [Concomitant]
     Dosage: 10 UNK, UNK
     Dates: start: 20070101
  7. XANAX [Concomitant]
     Dosage: UNK
  8. PREVISCAN [Concomitant]
     Dosage: UNK
  9. CORVASAL [Suspect]
     Dosage: 4 MG, 3X/DAY
     Route: 048
     Dates: start: 20070101, end: 20110608

REACTIONS (3)
  - RHABDOMYOLYSIS [None]
  - MYALGIA [None]
  - RENAL FAILURE ACUTE [None]
